FAERS Safety Report 4548836-0 (Version None)
Quarter: 2004Q4

REPORT INFORMATION
  Report Type: 
  Country: None (occurrence: None)
  Receive Date: 20041227
  Receipt Date: 20041130
  Transmission Date: 20050328
  Serious: No
  Sender: FDA-Public Use
  Company Number: 04P-163-0281785-00

PATIENT
  Age: 63 Year
  Sex: Female
  Weight: 87.0906 kg

DRUGS (13)
  1. HUMIRA [Suspect]
     Indication: RHEUMATOID ARTHRITIS
     Dosage: 40 MG, 1 IN 2 WK, SUBCUTANEOUS
     Route: 058
     Dates: start: 20041115, end: 20041130
  2. LISINOPRIL [Concomitant]
  3. ATENOLOL [Concomitant]
  4. ASPIRIN [Concomitant]
  5. PREDNISONE [Concomitant]
  6. METHOTREXATE [Concomitant]
  7. CELECOXIB [Concomitant]
  8. HYDROCODEINE [Concomitant]
  9. PIROXICAM [Concomitant]
  10. MULTIVITAMIN [Concomitant]
  11. CALCIUM GLUCONATE [Concomitant]
  12. FOLIC ACID [Concomitant]
  13. IRON PILL [Concomitant]

REACTIONS (5)
  - DIZZINESS [None]
  - DYSPNOEA [None]
  - INJECTION SITE BURNING [None]
  - RASH [None]
  - SWELLING FACE [None]
